FAERS Safety Report 5252557-9 (Version None)
Quarter: 2007Q1

REPORT INFORMATION
  Report Type: 
  Country: None (occurrence: None)
  Receive Date: 20070301
  Receipt Date: 20070222
  Transmission Date: 20070707
  Serious: Yes (Hospitalization)
  Sender: FDA-Public Use
  Company Number: US-JNJFOC-20070205360

PATIENT
  Sex: Female

DRUGS (9)
  1. INFLIXIMAB [Suspect]
     Indication: RHEUMATOID ARTHRITIS
     Route: 042
  2. ASACOL [Concomitant]
  3. CELEXA [Concomitant]
  4. DETROL [Concomitant]
  5. MULTI-VITAMIN [Concomitant]
  6. NORVASC [Concomitant]
  7. TRAZODONE HCL [Concomitant]
  8. TYLENOL [Concomitant]
  9. TUMS [Concomitant]

REACTIONS (3)
  - DEHYDRATION [None]
  - FOOD POISONING [None]
  - GASTROENTERITIS [None]
